FAERS Safety Report 8880905 (Version 2)
Quarter: 2016Q3

REPORT INFORMATION
  Report Type: Spontaneous
  Country: GB (occurrence: GB)
  Receive Date: 20121101
  Receipt Date: 20160728
  Transmission Date: 20161109
  Serious: Yes (Other)
  Sender: FDA-Public Use
  Company Number: GB-AMGEN-GBRSP2012045429

PATIENT
  Age: 0 Day
  Sex: Female

DRUGS (5)
  1. NPLATE [Suspect]
     Active Substance: ROMIPLOSTIM
     Indication: IMMUNE THROMBOCYTOPENIC PURPURA
     Dosage: 650 MUG, QWK
     Route: 064
     Dates: start: 20100909, end: 20111102
  2. DEXAMETHASONE. [Concomitant]
     Active Substance: DEXAMETHASONE
     Indication: IMMUNE THROMBOCYTOPENIC PURPURA
     Dosage: 20 MG, QD
     Route: 064
     Dates: start: 20120531, end: 20120605
  3. NPLATE [Suspect]
     Active Substance: ROMIPLOSTIM
     Dosage: 300 UNK, QWK
     Route: 063
     Dates: start: 20120612, end: 20120712
  4. AZATHIOPRINE. [Concomitant]
     Active Substance: AZATHIOPRINE
     Indication: IMMUNE THROMBOCYTOPENIC PURPURA
     Dosage: 200 MG, QD
     Route: 064
     Dates: start: 20111110, end: 20120607
  5. IV-GLOBULIN [Concomitant]
     Indication: IMMUNE THROMBOCYTOPENIC PURPURA
     Dosage: 70 G, QWK
     Route: 064
     Dates: start: 20111117, end: 20120531

REACTIONS (2)
  - Platelet count decreased [Unknown]
  - Exposure during breast feeding [Recovered/Resolved]

NARRATIVE: CASE EVENT DATE: 20120607
